FAERS Safety Report 5607313-6 (Version None)
Quarter: 2008Q1

REPORT INFORMATION
  Report Type: 
  Country: None (occurrence: None)
  Receive Date: 20080130
  Receipt Date: 20080121
  Transmission Date: 20080703
  Serious: Yes (Life-Threatening)
  Sender: FDA-Public Use
  Company Number: US-JNJFOC-20080105126

PATIENT

DRUGS (2)
  1. ASPIRIN [Suspect]
     Indication: THROMBOSIS PROPHYLAXIS
  2. DABIGATRAN [Suspect]
     Indication: THROMBOSIS PROPHYLAXIS

REACTIONS (1)
  - HAEMORRHAGE [None]
